FAERS Safety Report 10054701 (Version 5)
Quarter: 2014Q3

REPORT INFORMATION
  Report Type: Spontaneous
  Country: US (occurrence: US)
  Receive Date: 20140402
  Receipt Date: 20140715
  Transmission Date: 20150326
  Serious: No
  Sender: FDA-Public Use
  Company Number: US-AMGEN-USASP2014021831

PATIENT
  Age: 56 Year
  Sex: Female
  Weight: 52.15 kg

DRUGS (17)
  1. ENBREL [Suspect]
     Active Substance: ETANERCEPT
     Indication: RHEUMATOID ARTHRITIS
     Dosage: 50 MG, QWK
     Route: 058
     Dates: start: 20140218, end: 20140506
  2. ENBREL [Suspect]
     Active Substance: ETANERCEPT
     Indication: ANKYLOSING SPONDYLITIS
  3. ZOLPIDEM [Concomitant]
     Active Substance: ZOLPIDEM\ZOLPIDEM TARTRATE
     Indication: SLEEP DISORDER
     Dosage: 5 MG, 1 TABLET AT BED TIME AS NEEDED
     Route: 048
     Dates: start: 20131217
  4. VITAMIN D3 [Concomitant]
     Active Substance: CHOLECALCIFEROL
     Dosage: 3000 UNIT, QD, 1 TABLET EVERYDAY
     Route: 048
  5. MAGNESIUM [Concomitant]
     Active Substance: MAGNESIUM
     Dosage: UNK
     Route: 048
  6. FLUTICASONE PROPIONATE. [Concomitant]
     Active Substance: FLUTICASONE PROPIONATE
     Dosage: 50 MCG, QD, 1-2 SPRAYS
     Route: 045
     Dates: start: 20140402
  7. ESTRADIOL. [Concomitant]
     Active Substance: ESTRADIOL
     Dosage: 0.5-1 TABLET EVERY DAY
     Route: 048
     Dates: start: 20131217
  8. FISH OIL [Concomitant]
     Active Substance: FISH OIL
     Dosage: 1 TSP, QD
  9. MAGNESIUM GLUCONATE [Concomitant]
     Active Substance: MAGNESIUM GLUCONATE
     Dosage: 400 MG, QD
     Route: 048
  10. DHEA [Concomitant]
     Active Substance: DEHYDROEPIANDROSTERONE-3-SULFATE SODIUM
     Dosage: UNK UNK, QD, 1 TABLET
     Route: 048
     Dates: end: 20140506
  11. CALCIUM [Concomitant]
     Active Substance: CALCIUM
     Dosage: UNK
     Route: 048
  12. VITAMIN C [Concomitant]
     Active Substance: ASCORBIC ACID
     Dosage: UNK
     Route: 048
  13. WELLBUTRIN [Concomitant]
     Active Substance: BUPROPION HYDROCHLORIDE
     Dosage: 150 MG, QD
     Route: 048
  14. ESTRIOL [Concomitant]
     Active Substance: ESTRIOL
     Dosage: 0.1 %, UNK
     Dates: end: 20140409
  15. ADDERALL [Concomitant]
     Active Substance: AMPHETAMINE ASPARTATE\AMPHETAMINE SULFATE\DEXTROAMPHETAMINE SACCHARATE\DEXTROAMPHETAMINE SULFATE
     Dosage: 1 CAPSULE, QD
     Route: 048
     Dates: start: 20140311, end: 20140409
  16. IBUPROFEN. [Concomitant]
     Active Substance: IBUPROFEN
     Indication: PAIN
     Dosage: 600 MG, TID
     Route: 048
     Dates: start: 20140424
  17. VENTOLIN [Concomitant]
     Active Substance: ALBUTEROL SULFATE
     Dosage: UNK

REACTIONS (14)
  - Insomnia [Unknown]
  - Hypertrophy of tongue papillae [Not Recovered/Not Resolved]
  - Asthenia [Unknown]
  - Rhinorrhoea [Not Recovered/Not Resolved]
  - Tenderness [Unknown]
  - Injection site erythema [Not Recovered/Not Resolved]
  - Oral herpes [Not Recovered/Not Resolved]
  - Aphthous stomatitis [Recovered/Resolved]
  - Muscle spasms [Not Recovered/Not Resolved]
  - Paraesthesia [Not Recovered/Not Resolved]
  - Hypoaesthesia [Not Recovered/Not Resolved]
  - Contusion [Not Recovered/Not Resolved]
  - Musculoskeletal pain [Unknown]
  - Neck pain [Unknown]

NARRATIVE: CASE EVENT DATE: 20140310
